FAERS Safety Report 7001774-6 (Version None)
Quarter: 2010Q3

REPORT INFORMATION
  Report Type: 
  Country: None (occurrence: None)
  Receive Date: 20100920
  Receipt Date: 20070521
  Transmission Date: 20110219
  Serious: Yes (Other)
  Sender: FDA-Public Use
  Company Number: US-ASTRAZENECA-2006UW26327

PATIENT
  Age: 22057 Day
  Sex: Female
  Weight: 82.1 kg

DRUGS (19)
  1. SEROQUEL [Suspect]
     Indication: BIPOLAR DISORDER
     Route: 048
     Dates: start: 20010101
  2. SEROQUEL [Suspect]
     Dosage: 25-150 MG
     Route: 048
     Dates: start: 20010914
  3. AMARYL [Concomitant]
     Dosage: 2-4 MG
     Dates: start: 20010410
  4. LASIX [Concomitant]
     Dosage: 10-40 MG
     Dates: start: 20010914
  5. LEXAPRO [Concomitant]
     Dosage: 5-20 MG
     Route: 048
     Dates: start: 20040514
  6. NEXIUM [Concomitant]
     Route: 048
     Dates: start: 20020107
  7. GLUCOPHAGE [Concomitant]
     Dates: start: 20001023
  8. GLUCOTROL XL [Concomitant]
     Dates: start: 20000428
  9. DEPAKOTE [Concomitant]
     Indication: BIPOLAR DISORDER
     Dates: start: 19990726
  10. ZESTRIL [Concomitant]
     Dosage: 10-40 MG
     Dates: start: 20000428
  11. KEFLEX [Concomitant]
     Route: 048
     Dates: start: 20000929
  12. NEURONTIN [Concomitant]
     Dates: start: 20010914
  13. DIFLUCAN [Concomitant]
     Route: 048
     Dates: start: 20000929
  14. ZYPREXA [Concomitant]
     Dates: start: 19990726
  15. CARDIZEM CD [Concomitant]
     Indication: HYPERTENSION
     Dosage: 180-240 MG
     Dates: start: 19991015
  16. ATACAND [Concomitant]
     Indication: HYPERTENSION
     Dates: start: 20040514
  17. PROCARDIA [Concomitant]
     Dates: start: 20040514
  18. POTASSIUM CHLORIDE [Concomitant]
     Dates: start: 20060905
  19. OMEPRAZOLE [Concomitant]
     Dates: start: 20060905

REACTIONS (5)
  - CEREBROVASCULAR ACCIDENT [None]
  - DIABETES MELLITUS [None]
  - DIABETIC KETOACIDOSIS [None]
  - HYPOGLYCAEMIA [None]
  - TYPE 2 DIABETES MELLITUS [None]
